FAERS Safety Report 7488358-0 (Version None)
Quarter: 2011Q2

REPORT INFORMATION
  Report Type: 
  Country: None (occurrence: None)
  Receive Date: 20110518
  Receipt Date: 20110504
  Transmission Date: 20111010
  Serious: Yes (Other)
  Sender: FDA-Public Use
  Company Number: DK-JNJFOC-20100804791

PATIENT
  Sex: Female
  Weight: 64 kg

DRUGS (5)
  1. REMICADE [Suspect]
     Indication: CROHN'S DISEASE
     Dosage: WEEK 0
     Route: 042
     Dates: start: 20100722
  2. REMICADE [Suspect]
     Dosage: WEEK 0
     Route: 042
     Dates: start: 20100722
  3. MANDOLGIN [Concomitant]
     Indication: ANALGESIC THERAPY
     Route: 048
  4. REMICADE [Suspect]
     Indication: ARTHRITIS
     Dosage: WEEK 2
     Route: 042
     Dates: start: 20100805
  5. REMICADE [Suspect]
     Dosage: WEEK 2
     Route: 042
     Dates: start: 20100805

REACTIONS (4)
  - MALAISE [None]
  - DYSPNOEA [None]
  - TINNITUS [None]
  - INFUSION RELATED REACTION [None]
